FAERS Safety Report 8802295 (Version 2)
Quarter: 2015Q2

REPORT INFORMATION
  Report Type: Report from Study
  Country: US (occurrence: US)
  Receive Date: 20120921
  Receipt Date: 20150624
  Transmission Date: 20150821
  Serious: Yes (Death)
  Sender: FDA-Public Use
  Company Number: US-ROCHE-1125627

PATIENT
  Sex: Female

DRUGS (7)
  1. ANZEMET [Concomitant]
     Active Substance: DOLASETRON MESYLATE
     Route: 065
     Dates: start: 20051212
  2. NAVELBINE [Concomitant]
     Active Substance: VINORELBINE TARTRATE
     Route: 065
     Dates: start: 20051212
  3. GEMZAR [Concomitant]
     Active Substance: GEMCITABINE HYDROCHLORIDE
     Route: 065
     Dates: start: 20060118
  4. DECADRON [Concomitant]
     Active Substance: DEXAMETHASONE
     Route: 065
     Dates: start: 20051212
  5. ZOMETA [Concomitant]
     Active Substance: ZOLEDRONIC ACID
     Route: 065
     Dates: start: 20050803
  6. AVASTIN [Suspect]
     Active Substance: BEVACIZUMAB
     Indication: BREAST CANCER FEMALE
     Route: 065
     Dates: start: 20051228
  7. XELODA [Concomitant]
     Active Substance: CAPECITABINE
     Route: 065
     Dates: start: 20051212

REACTIONS (8)
  - Swelling [Unknown]
  - Hypoaesthesia [Unknown]
  - Tumour invasion [Unknown]
  - Brachial plexopathy [Unknown]
  - Paraesthesia [Unknown]
  - Death [Fatal]
  - Off label use [Unknown]
  - Sensory loss [Unknown]
